FAERS Safety Report 8340182-2 (Version None)
Quarter: 2012Q2

REPORT INFORMATION
  Report Type: 
  Country: None (occurrence: None)
  Receive Date: 20120507
  Receipt Date: 20120208
  Transmission Date: 20120825
  Serious: No
  Sender: FDA-Public Use
  Company Number: US-ASTRAZENECA-2011SE55722

PATIENT
  Age: 61 Year
  Sex: Female

DRUGS (7)
  1. SEROQUEL [Suspect]
     Route: 048
  2. THYROID [Concomitant]
     Indication: BASEDOW'S DISEASE
  3. VIMOVO [Suspect]
     Route: 048
  4. PRESERVISION OCUVITE [Concomitant]
     Indication: VITAMIN SUPPLEMENTATION
     Dosage: 4 DAILY, 2 AM, 2 PM
  5. THYROID [Concomitant]
     Indication: HYPOPARATHYROIDISM
  6. TRAZODONE HCL [Concomitant]
     Indication: SLEEP DISORDER
  7. CALCIUM [Concomitant]
     Dosage: 6000 DAILY

REACTIONS (4)
  - JOINT STIFFNESS [None]
  - BASEDOW'S DISEASE [None]
  - OSTEOARTHRITIS [None]
  - DRUG HYPERSENSITIVITY [None]
